FAERS Safety Report 24667776 (Version 4)
Quarter: 2025Q1

REPORT INFORMATION
  Report Type: Spontaneous
  Country: US (occurrence: US)
  Receive Date: 20241127
  Receipt Date: 20250101
  Transmission Date: 20250408
  Serious: No
  Sender: SANOFI AVENTIS
  Company Number: US-SANOFI-02307501

PATIENT
  Age: 5 Year
  Sex: Female

DRUGS (15)
  1. DUPIXENT [Suspect]
     Active Substance: DUPILUMAB
     Indication: Eczema
     Dosage: 400 MG, QW
     Route: 065
     Dates: start: 20220707
  2. DUPIXENT [Suspect]
     Active Substance: DUPILUMAB
     Indication: Dermatitis atopic
     Dosage: 300 MG, QM
     Route: 065
  3. DESONIDE [Concomitant]
     Active Substance: DESONIDE
  4. CLOBETASOL PROPIONATE [Concomitant]
     Active Substance: CLOBETASOL PROPIONATE
  5. TRIAMCINOLONE [Concomitant]
     Active Substance: TRIAMCINOLONE
  6. MOMETASONE FUROATE [Concomitant]
     Active Substance: MOMETASONE FUROATE
  7. HYDROXYZINE [Concomitant]
     Active Substance: HYDROXYZINE HYDROCHLORIDE
  8. TACROLIMUS [Concomitant]
     Active Substance: TACROLIMUS
  9. FOLVITE [Concomitant]
     Active Substance: FOLIC ACID
  10. TEMOVATE [Concomitant]
     Active Substance: CLOBETASOL PROPIONATE
  11. SYNALAR [Concomitant]
     Active Substance: FLUOCINOLONE ACETONIDE
  12. RUXOLITINIB PHOSPHATE [Concomitant]
     Active Substance: RUXOLITINIB PHOSPHATE
  13. EPINEPHRINE [Concomitant]
     Active Substance: EPINEPHRINE
  14. HYDROCORTISONE [Concomitant]
     Active Substance: HYDROCORTISONE
  15. MOMETASONE [Concomitant]
     Active Substance: MOMETASONE

REACTIONS (29)
  - Varicella [Not Recovered/Not Resolved]
  - Arthralgia [Not Recovered/Not Resolved]
  - Abdominal pain upper [Not Recovered/Not Resolved]
  - Pyrexia [Not Recovered/Not Resolved]
  - Vomiting [Recovering/Resolving]
  - Platelet count abnormal [Unknown]
  - Haemoglobin decreased [Unknown]
  - Lymphocyte count decreased [Unknown]
  - Urine analysis abnormal [Unknown]
  - Monocyte count increased [Unknown]
  - Blood sodium decreased [Unknown]
  - Blood chloride decreased [Unknown]
  - C-reactive protein increased [Unknown]
  - White blood cells urine positive [Unknown]
  - Dry skin [Unknown]
  - Rash [Unknown]
  - Illness [Unknown]
  - Infection [Unknown]
  - Scab [Unknown]
  - Malaise [Unknown]
  - Body temperature fluctuation [Unknown]
  - Dehydration [Unknown]
  - Abdominal discomfort [Unknown]
  - Pain in extremity [Unknown]
  - Inflammation [Unknown]
  - Back pain [Unknown]
  - Headache [Recovering/Resolving]
  - Myalgia [Unknown]
  - Injection site pain [Unknown]

NARRATIVE: CASE EVENT DATE: 20241001
